FAERS Safety Report 5214500-8 (Version None)
Quarter: 2006Q4

REPORT INFORMATION
  Report Type: 
  Country: None (occurrence: None)
  Receive Date: 20061107
  Receipt Date: 20060808
  Transmission Date: 20070319
  Serious: No
  Sender: FDA-Public Use
  Company Number: 200615018BWH

PATIENT
  Age: 69 Year
  Sex: Male

DRUGS (4)
  1. LEVITRA [Suspect]
     Indication: ERECTILE DYSFUNCTION
     Dosage: 10 MG, BIW, ORAL
     Route: 048
     Dates: end: 20051201
  2. COUMADIN [Concomitant]
  3. LANOXIN [Concomitant]
  4. METOPROLOL SUCCINATE [Concomitant]

REACTIONS (1)
  - ERECTILE DYSFUNCTION [None]
